FAERS Safety Report 8796958 (Version 1)
Quarter: 2012Q4

REPORT INFORMATION
  Report Type: 
  Country: US (occurrence: US)
  Receive Date: 20120920
  Receipt Date: 20120920
  Transmission Date: 20130627
  Serious: Yes (Other)
  Sender: FDA-Public Use
  Company Number: PHEH2012US018011

PATIENT
  Sex: Male

DRUGS (4)
  1. DIOVAN [Suspect]
  2. PANTOPRAZOLE [Concomitant]
  3. AZOPT [Concomitant]
  4. TRAVATAN Z [Concomitant]

REACTIONS (1)
  - Extravasation blood [Unknown]
